FAERS Safety Report 15109541 (Version 2)
Quarter: 2018Q3

REPORT INFORMATION
  Report Type: Spontaneous
  Country: US (occurrence: US)
  Receive Date: 20180705
  Receipt Date: 20180830
  Transmission Date: 20181010
  Serious: No
  Sender: FDA-Public Use
  Company Number: US-PFIZER INC-2018271580

PATIENT
  Age: 25 Year
  Sex: Male

DRUGS (1)
  1. BOSULIF [Suspect]
     Active Substance: BOSUTINIB MONOHYDRATE
     Indication: CHRONIC MYELOID LEUKAEMIA
     Dosage: 400 MG, DAILY (4 TABLET)
     Route: 048
     Dates: start: 20180629

REACTIONS (6)
  - Abdominal discomfort [Unknown]
  - Drug dose omission [Unknown]
  - Skin burning sensation [Unknown]
  - Diarrhoea [Unknown]
  - Rash papular [Unknown]
  - Nausea [Unknown]

NARRATIVE: CASE EVENT DATE: 2018
